FAERS Safety Report 7290046-0 (Version None)
Quarter: 2011Q1

REPORT INFORMATION
  Report Type: 
  Country: None (occurrence: None)
  Receive Date: 20110214
  Receipt Date: 20110204
  Transmission Date: 20110831
  Serious: Yes (Hospitalization)
  Sender: FDA-Public Use
  Company Number: US-ASTRAZENECA-2011SE06561

PATIENT
  Age: 24466 Day
  Sex: Female

DRUGS (1)
  1. SYMBICORT [Suspect]
     Indication: DYSPNOEA
     Dosage: 160/4.5 MVG, UNKNOWN FREQUENCY
     Route: 055

REACTIONS (6)
  - DRUG DOSE OMISSION [None]
  - CORONARY ARTERY BYPASS [None]
  - HOSPITALISATION [None]
  - PERICARDIAL DRAINAGE [None]
  - DYSPNOEA [None]
  - DRUG INEFFECTIVE [None]
